FAERS Safety Report 13416694 (Version 1)
Quarter: 2017Q2

REPORT INFORMATION
  Report Type: Spontaneous
  Country: CN (occurrence: CN)
  Receive Date: 20170406
  Receipt Date: 20170406
  Transmission Date: 20170830
  Serious: No
  Sender: FDA-Public Use
  Company Number: CN-ARALEZ PHARMACEUTICALS R+D INC.-ARA-TP-CN-2017-350

PATIENT
  Age: 62 Year
  Sex: Female

DRUGS (2)
  1. BETALOC [Suspect]
     Active Substance: METOPROLOL TARTRATE
     Indication: TACHYCARDIA
  2. METOPROLOL SUCCINATE. [Suspect]
     Active Substance: METOPROLOL SUCCINATE
     Indication: PRODUCT USED FOR UNKNOWN INDICATION

REACTIONS (2)
  - Plicated tongue [Not Recovered/Not Resolved]
  - Angina pectoris [Not Recovered/Not Resolved]
